FAERS Safety Report 5965047-2 (Version None)
Quarter: 2008Q4

REPORT INFORMATION
  Report Type: 
  Country: None (occurrence: None)
  Receive Date: 20081125
  Receipt Date: 20081114
  Transmission Date: 20090506
  Serious: Yes (Hospitalization)
  Sender: FDA-Public Use
  Company Number: PHHO2008GB13609

PATIENT
  Sex: Female
  Weight: 81 kg

DRUGS (8)
  1. ZOLEDRONATE T29581+SOLINJ+BM [Suspect]
     Indication: BREAST CANCER
     Dosage: 4 MG, UNK
     Route: 042
     Dates: start: 20051004, end: 20080326
  2. VITAMIN D [Concomitant]
     Dosage: UNK
     Dates: start: 20051004
  3. CALCIUM [Concomitant]
     Dosage: UNK
     Dates: start: 20051004
  4. EXEMESTANE [Concomitant]
     Indication: BREAST CANCER
     Dosage: 25 MG, UNK
     Route: 048
     Dates: start: 20080730
  5. OMEPRAZOLE [Concomitant]
     Indication: HIATUS HERNIA
     Dosage: 40 MG, UNK
  6. SERETIDE [Concomitant]
     Indication: ASTHMA
     Dosage: UNK
  7. ADCAL [Concomitant]
     Indication: HYPOCALCAEMIA
     Dosage: UNK
     Dates: start: 20080730
  8. ZOPLICONE [Concomitant]
     Indication: SEDATION
     Dosage: UNK

REACTIONS (4)
  - FEMUR FRACTURE [None]
  - HIP ARTHROPLASTY [None]
  - WOUND INFECTION [None]
  - WOUND TREATMENT [None]
